FAERS Safety Report 9811288 (Version 2)
Quarter: 2014Q1

REPORT INFORMATION
  Report Type: Spontaneous
  Country: US (occurrence: US)
  Receive Date: 20140110
  Receipt Date: 20140110
  Transmission Date: 20141002
  Serious: Yes (Hospitalization)
  Sender: FDA-Public Use
  Company Number: US-SANOFI-AVENTIS-2013SA037199

PATIENT
  Age: 80 Year
  Sex: Female

DRUGS (9)
  1. PLAVIX [Suspect]
     Indication: CARDIOVASCULAR DISORDER
  2. PLAVIX [Suspect]
     Indication: TYPE 2 DIABETES MELLITUS
  3. ASPIRIN [Suspect]
     Route: 065
  4. INSULIN GLARGINE [Concomitant]
     Indication: TYPE 2 DIABETES MELLITUS
  5. GLYBURIDE [Concomitant]
     Indication: TYPE 2 DIABETES MELLITUS
  6. METFORMIN [Concomitant]
     Indication: TYPE 2 DIABETES MELLITUS
     Dates: start: 20110207
  7. BLINDED THERAPY [Concomitant]
     Dates: start: 20110207, end: 20130204
  8. PLATELET AGGREGATION INHIBITORS [Concomitant]
  9. BETA BLOCKING AGENTS [Concomitant]

REACTIONS (1)
  - Haematoma [Recovering/Resolving]
